FAERS Safety Report 20198403 (Version 1)
Quarter: 2021Q4

REPORT INFORMATION
  Report Type: Spontaneous
  Country: TR (occurrence: None)
  Receive Date: 20211217
  Receipt Date: 20211217
  Transmission Date: 20220303
  Serious: Yes (Other)
  Sender: FDA-Public Use
  Company Number: TR-Merck Healthcare KGaA-9286641

PATIENT
  Age: 33 Year
  Sex: Female

DRUGS (1)
  1. MAVENCLAD [Suspect]
     Active Substance: CLADRIBINE
     Indication: Relapsing multiple sclerosis
     Dosage: FIRST YEAR THERAPY: AT A DOSAGE OF 1.75 MG/KG
     Route: 048
     Dates: start: 20210404, end: 20210507

REACTIONS (2)
  - COVID-19 [Recovered/Resolved]
  - Multiple sclerosis relapse [Recovered/Resolved]

NARRATIVE: CASE EVENT DATE: 20210801
